FAERS Safety Report 8290730-6 (Version None)
Quarter: 2012Q2

REPORT INFORMATION
  Report Type: 
  Country: None (occurrence: None)
  Receive Date: 20120412
  Receipt Date: 20120412
  Transmission Date: 20120825
  Serious: Yes (Other)
  Sender: FDA-Public Use
  Company Number: None

PATIENT
  Age: 59 Year
  Sex: Female
  Weight: 85.7298 kg

DRUGS (2)
  1. LEVOTHYROXINE SODIUM [Suspect]
     Indication: GOITRE
     Dosage: 25MCG  1 QD BY MOUTH
     Route: 048
     Dates: start: 20110701, end: 20120329
  2. LEVOTHYROXINE SODIUM [Suspect]
     Indication: PRIMARY HYPOTHYROIDISM
     Dosage: 25MCG  1 QD BY MOUTH
     Route: 048
     Dates: start: 20110701, end: 20120329

REACTIONS (2)
  - PRURITUS [None]
  - ALOPECIA [None]
